FAERS Safety Report 8536654-8 (Version None)
Quarter: 2012Q3

REPORT INFORMATION
  Report Type: 
  Country: None (occurrence: None)
  Receive Date: 20120725
  Receipt Date: 20120712
  Transmission Date: 20120928
  Serious: Yes (Hospitalization)
  Sender: FDA-Public Use
  Company Number: BR-ROCHE-1090149

PATIENT
  Sex: Male
  Weight: 71 kg

DRUGS (7)
  1. XOLAIR [Suspect]
     Indication: ASTHMA
  2. BUDESONIDE [Suspect]
     Indication: ASTHMA
     Dosage: 12/400 MCG
  3. LOSARTAN POTASSIUM [Concomitant]
  4. BUDESONIDE [Suspect]
     Indication: DYSPNOEA
  5. DISGREN (BRAZIL) [Concomitant]
  6. BAMIFIX [Concomitant]
  7. XOLAIR [Suspect]
     Indication: DYSPNOEA

REACTIONS (8)
  - ASTHMA [None]
  - NASOPHARYNGITIS [None]
  - PNEUMONIA [None]
  - BLOOD PRESSURE INCREASED [None]
  - ISCHAEMIA [None]
  - DYSPHONIA [None]
  - COUGH [None]
  - MALAISE [None]
